FAERS Safety Report 6449305-3 (Version None)
Quarter: 2009Q4

REPORT INFORMATION
  Report Type: 
  Country: None (occurrence: None)
  Receive Date: 20091120
  Receipt Date: 20091106
  Transmission Date: 20100525
  Serious: Yes (Hospitalization)
  Sender: FDA-Public Use
  Company Number: US-ELI_LILLY_AND_COMPANY-US200909004128

PATIENT
  Sex: Female

DRUGS (5)
  1. FORTEO [Suspect]
  2. NEXIUM [Concomitant]
  3. OXYCODONE HCL AND ACETAMINOPHEN [Concomitant]
  4. OXYCODONE HCL [Concomitant]
  5. METANX [Concomitant]

REACTIONS (3)
  - INJECTION SITE HAEMORRHAGE [None]
  - LOWER LIMB FRACTURE [None]
  - MUSCLE SPASMS [None]
